FAERS Safety Report 12609850 (Version 1)
Quarter: 2016Q3

REPORT INFORMATION
  Report Type: Spontaneous
  Country: US (occurrence: US)
  Receive Date: 20160801
  Receipt Date: 20160801
  Transmission Date: 20161109
  Serious: Yes (Hospitalization, Other)
  Sender: FDA-Public Use
  Company Number: US-SCIEGEN PHARMACEUTICALS INC-2016SCILIT00343

PATIENT
  Age: 60 Year
  Sex: Female

DRUGS (2)
  1. JANUVIA [Interacting]
     Active Substance: SITAGLIPTIN PHOSPHATE
     Indication: PRODUCT USED FOR UNKNOWN INDICATION
     Dosage: 100 MG, UNK
     Route: 065
  2. ATORVASTATIN CALCIUM. [Suspect]
     Active Substance: ATORVASTATIN CALCIUM
     Indication: HYPERLIPIDAEMIA
     Dosage: 40 MG, UNK FOR SEVERAL YEARS
     Route: 065

REACTIONS (11)
  - Pyrexia [Unknown]
  - Chills [Unknown]
  - Chest pain [Recovered/Resolved]
  - Oedema peripheral [Unknown]
  - Sinus tachycardia [Unknown]
  - Rhabdomyolysis [Unknown]
  - Myalgia [Recovered/Resolved]
  - Acute kidney injury [Unknown]
  - Drug interaction [Unknown]
  - Asthenia [Unknown]
  - Viral infection [Unknown]
